FAERS Safety Report 4267027-4 (Version None)
Quarter: 2004Q1

REPORT INFORMATION
  Report Type: 
  Country: None (occurrence: None)
  Receive Date: 20040107
  Receipt Date: 20031215
  Transmission Date: 20041129
  Serious: Yes (Hospitalization)
  Sender: FDA-Public Use
  Company Number: 230009M03CAN

PATIENT
  Age: 42 Year
  Sex: Female

DRUGS (5)
  1. REBIF [Suspect]
     Indication: MULTIPLE SCLEROSIS
  2. AMITRIPTYLINE HYDROCHLORIDE [Concomitant]
  3. GABAPENTIN [Concomitant]
  4. CLONAZEPAM [Concomitant]
  5. CEPHALEXIN MONOHYDRATE [Concomitant]

REACTIONS (4)
  - CELLULITIS [None]
  - INJECTION SITE INFECTION [None]
  - INJECTION SITE INFLAMMATION [None]
  - PANNICULITIS [None]
